FAERS Safety Report 11468303 (Version 2)
Quarter: 2016Q2

REPORT INFORMATION
  Report Type: Spontaneous
  Country: KR (occurrence: KR)
  Receive Date: 20150908
  Receipt Date: 20160513
  Transmission Date: 20160815
  Serious: Yes (Disabling)
  Sender: FDA-Public Use
  Company Number: KR-SEPTODONT-201502988

PATIENT
  Age: 42 Year
  Sex: Female

DRUGS (1)
  1. SEPTANEST WITH ADRENALINE 1/100.000 [Suspect]
     Active Substance: ARTICAINE HYDROCHLORIDE\EPINEPHRINE BITARTRATE
     Indication: LOCAL ANAESTHESIA
     Dosage: ONE CARTRIDGE
     Route: 004
     Dates: start: 20140917

REACTIONS (3)
  - Paralysis [Not Recovered/Not Resolved]
  - Numb chin syndrome [Not Recovered/Not Resolved]
  - Hypoaesthesia oral [Not Recovered/Not Resolved]

NARRATIVE: CASE EVENT DATE: 20140918
